FAERS Safety Report 16512353 (Version 1)
Quarter: 2019Q3

REPORT INFORMATION
  Report Type: Spontaneous
  Country: JP (occurrence: JP)
  Receive Date: 20190701
  Receipt Date: 20190701
  Transmission Date: 20191004
  Serious: Yes (Other)
  Sender: FDA-Public Use
  Company Number: JP-MYLANLABS-2019M1059366

PATIENT
  Sex: Female

DRUGS (2)
  1. MESALAZINE TABLETS 400MG [PFIZER] [Suspect]
     Active Substance: MESALAMINE
     Indication: COLITIS ULCERATIVE
     Dosage: 800 MILLIGRAM, TID
     Route: 048
  2. MESALAZINE TABLETS 400MG [PFIZER] [Suspect]
     Active Substance: MESALAMINE
     Dosage: 1200 MILLIGRAM, TID
     Route: 048
     Dates: start: 201903

REACTIONS (3)
  - Product residue present [Unknown]
  - Haematochezia [Unknown]
  - Treatment failure [Unknown]
